FAERS Safety Report 7269730-0 (Version None)
Quarter: 2011Q1

REPORT INFORMATION
  Report Type: 
  Country: None (occurrence: None)
  Receive Date: 20110202
  Receipt Date: 20110125
  Transmission Date: 20110831
  Serious: Yes (Hospitalization, Other)
  Sender: FDA-Public Use
  Company Number: JP-BAYER-201015752BYL

PATIENT
  Sex: Male
  Weight: 73 kg

DRUGS (9)
  1. BLOPRESS [Concomitant]
     Indication: HYPERTENSION
     Dosage: DAILY DOSE 4 MG
     Route: 048
     Dates: start: 20101101, end: 20101115
  2. PREDNISOLONE [Suspect]
     Indication: INTERSTITIAL LUNG DISEASE
     Dosage: DAILY DOSE 11 MG
     Route: 048
     Dates: start: 20100213
  3. NEXAVAR [Suspect]
     Indication: RENAL CELL CARCINOMA
     Dosage: 600 MG (DAILY DOSE), , ORAL
     Route: 048
     Dates: start: 20101025, end: 20101108
  4. ARTIST [Concomitant]
     Indication: HYPERTENSION
     Dosage: DAILY DOSE 20 MG
     Route: 048
  5. PREDNISOLONE [Suspect]
     Indication: IDIOPATHIC THROMBOCYTOPENIC PURPURA
  6. TEGRETOL [Concomitant]
     Indication: EPILEPSY
     Dosage: DAILY DOSE 200 MG
     Route: 048
     Dates: start: 20100301
  7. GASTER D [Concomitant]
     Indication: GASTRIC ULCER
     Dosage: DAILY DOSE 40 MG
     Route: 048
     Dates: start: 20100213
  8. ALFAROL [Concomitant]
     Indication: OSTEOPOROSIS
     Dosage: DAILY DOSE .25 ?G
     Route: 048
     Dates: start: 20100213
  9. AMLODIPINE [Concomitant]
     Indication: HYPERTENSION
     Dosage: DAILY DOSE 5 MG
     Route: 048
     Dates: start: 20100301

REACTIONS (2)
  - PULMONARY EMBOLISM [None]
  - DYSPNOEA [None]
